FAERS Safety Report 16811951 (Version 2)
Quarter: 2020Q1

REPORT INFORMATION
  Report Type: Report from Study
  Country: US (occurrence: US)
  Receive Date: 20190916
  Receipt Date: 20200117
  Transmission Date: 20200409
  Serious: Yes (Other)
  Sender: FDA-Public Use
  Company Number: PHEH2019US038061

PATIENT
  Age: 64 Year
  Sex: Female

DRUGS (1)
  1. GLATOPA [Suspect]
     Active Substance: GLATIRAMER ACETATE
     Indication: MULTIPLE SCLEROSIS RELAPSE
     Dosage: UNK
     Route: 065
     Dates: start: 201901, end: 20200109

REACTIONS (3)
  - Neoplasm malignant [Unknown]
  - Type 2 diabetes mellitus [Unknown]
  - Injection site haemorrhage [Recovered/Resolved]

NARRATIVE: CASE EVENT DATE: 201901
